FAERS Safety Report 5845214-9 (Version None)
Quarter: 2008Q3

REPORT INFORMATION
  Report Type: 
  Country: None (occurrence: None)
  Receive Date: 20080814
  Receipt Date: 20080806
  Transmission Date: 20090109
  Serious: Yes (Hospitalization)
  Sender: FDA-Public Use
  Company Number: A0739797A

PATIENT
  Age: 48 Year
  Sex: Female
  Weight: 80 kg

DRUGS (3)
  1. LAPATINIB [Suspect]
     Dosage: 1500MG PER DAY
     Route: 048
     Dates: start: 20080222
  2. BEVACIZUMAB [Suspect]
     Dosage: 10MGK CYCLIC
     Route: 042
     Dates: start: 20080222
  3. VERSED [Concomitant]
     Indication: SEDATION
     Dosage: 5MG SINGLE DOSE
     Route: 042
     Dates: start: 20080805, end: 20080805

REACTIONS (3)
  - ABDOMINAL PAIN [None]
  - HYDRONEPHROSIS [None]
  - NAUSEA [None]
